FAERS Safety Report 12095604 (Version 1)
Quarter: 2016Q1

REPORT INFORMATION
  Report Type: Spontaneous
  Country: US (occurrence: US)
  Receive Date: 20160219
  Receipt Date: 20160219
  Transmission Date: 20160526
  Serious: Yes (Hospitalization, Other)
  Sender: FDA-Public Use
  Company Number: US-ASTRAZENECA-2015SE98331

PATIENT
  Age: 24544 Day
  Sex: Female

DRUGS (2)
  1. TRAMADOL. [Concomitant]
     Active Substance: TRAMADOL
  2. FORXIGA [Suspect]
     Active Substance: DAPAGLIFLOZIN
     Route: 048
     Dates: start: 20141029, end: 20141103

REACTIONS (13)
  - Injury [Unknown]
  - Sepsis [Unknown]
  - Brain injury [Unknown]
  - Respiratory failure [Unknown]
  - Renal failure [Unknown]
  - Diabetic neuropathy [Unknown]
  - Acute kidney injury [Unknown]
  - Urinary tract infection [Unknown]
  - Hypertension [Unknown]
  - Pneumonia [Unknown]
  - Clostridium difficile colitis [Unknown]
  - Emotional disorder [Unknown]
  - Fungal infection [Unknown]

NARRATIVE: CASE EVENT DATE: 20141103
